FAERS Safety Report 21015033 (Version 2)
Quarter: 2022Q3

REPORT INFORMATION
  Report Type: Spontaneous
  Country: DE (occurrence: DE)
  Receive Date: 20220628
  Receipt Date: 20220704
  Transmission Date: 20221027
  Serious: Yes (Death, Other)
  Sender: FDA-Public Use
  Company Number: DE-DCGMA-21194569

PATIENT
  Age: 58 Year
  Sex: Female

DRUGS (1)
  1. CIPROFLOXACIN [Suspect]
     Active Substance: CIPROFLOXACIN
     Indication: Urinary tract infection
     Dosage: DAILY DOSE: 1500 MG MILLGRAM(S) EVERY DAYS 2 SEPARATED DOSES

REACTIONS (1)
  - Aortic rupture [Fatal]

NARRATIVE: CASE EVENT DATE: 20211029
